FAERS Safety Report 5874497-4 (Version None)
Quarter: 2008Q3

REPORT INFORMATION
  Report Type: 
  Country: None (occurrence: None)
  Receive Date: 20080909
  Receipt Date: 20080828
  Transmission Date: 20090109
  Serious: Yes (Hospitalization)
  Sender: FDA-Public Use
  Company Number: PHBS2008US05568

PATIENT
  Age: 52 Year
  Sex: Male

DRUGS (5)
  1. CLOZAPINE [Suspect]
     Indication: SCHIZOAFFECTIVE DISORDER
     Dosage: 550 MG/DAY
  2. CLOZAPINE [Suspect]
     Dosage: 400 MG/DAY
  3. LAMOTRIGINE [Suspect]
     Indication: CONVULSION
     Dosage: 312.5 MG, BID
  4. LORAZEPAM [Concomitant]
     Dosage: 0.5 MG, TID
     Route: 048
  5. LORAZEPAM [Concomitant]
     Dosage: 1 MG, TID

REACTIONS (8)
  - CONVULSION [None]
  - DEHYDRATION [None]
  - DRUG LEVEL INCREASED [None]
  - EATING DISORDER [None]
  - ELECTROENCEPHALOGRAM ABNORMAL [None]
  - MENTAL STATUS CHANGES [None]
  - TONIC CLONIC MOVEMENTS [None]
  - URINARY TRACT INFECTION [None]
